FAERS Safety Report 24205316 (Version 1)
Quarter: 2024Q3

REPORT INFORMATION
  Report Type: Other
  Country: US (occurrence: US)
  Receive Date: 20240813
  Receipt Date: 20240813
  Transmission Date: 20241017
  Serious: Yes (Life-Threatening, Hospitalization, Other)
  Sender: COREPHARMA
  Company Number: US-CorePharma LLC-2160352

PATIENT
  Age: 18 Year
  Sex: Female

DRUGS (2)
  1. AMLODIPINE BESYLATE [Suspect]
     Active Substance: AMLODIPINE BESYLATE
     Indication: Product used for unknown indication
     Route: 048
  2. ACETAMINOPHEN [Suspect]
     Active Substance: ACETAMINOPHEN
     Route: 065

REACTIONS (6)
  - Cardiogenic shock [Recovered/Resolved]
  - Intentional overdose [Unknown]
  - Harlequin syndrome [Recovered/Resolved]
  - Hypoxia [Recovered/Resolved]
  - Vasoplegia syndrome [Recovered/Resolved]
  - Non-cardiogenic pulmonary oedema [Recovered/Resolved]
